FAERS Safety Report 14537092 (Version 1)
Quarter: 2018Q1

REPORT INFORMATION
  Report Type: Other
  Country: GB (occurrence: GB)
  Receive Date: 20180215
  Receipt Date: 20180215
  Transmission Date: 20180509
  Serious: Yes (Other)
  Sender: FDA-Public Use
  Company Number: GB-B. BRAUN MEDICAL INC.-2042056

PATIENT
  Age: 19 Year
  Sex: Female
  Weight: 64 kg

DRUGS (5)
  1. LIDOCAINE HYDROCHLORIDE AND DEXTROSE [Suspect]
     Active Substance: DEXTROSE\LIDOCAINE HYDROCHLORIDE
     Route: 061
  2. PROPOFOL. [Concomitant]
     Active Substance: PROPOFOL
  3. VECURONIUM [Concomitant]
     Active Substance: VECURONIUM BROMIDE
  4. MIDAZOLAM [Concomitant]
     Active Substance: MIDAZOLAM HYDROCHLORIDE
  5. LIGNOCAINE [Concomitant]
     Active Substance: LIDOCAINE HYDROCHLORIDE
     Route: 042

REACTIONS (1)
  - Unilateral bronchospasm [None]
